FAERS Safety Report 12304834 (Version 1)
Quarter: 2016Q2

REPORT INFORMATION
  Report Type: Spontaneous
  Country: US (occurrence: US)
  Receive Date: 20160426
  Receipt Date: 20160426
  Transmission Date: 20160815
  Serious: Yes (Other)
  Sender: FDA-Public Use
  Company Number: US-ROCHE-1747004

PATIENT
  Sex: Male

DRUGS (2)
  1. GAZYVA [Suspect]
     Active Substance: OBINUTUZUMAB
     Dosage: FRONT LINE TREATMENT
     Route: 042
  2. GAZYVA [Suspect]
     Active Substance: OBINUTUZUMAB
     Indication: LEUKAEMIA
     Dosage: FRONT LINE TREATMENT
     Route: 042

REACTIONS (6)
  - Dyspnoea [Unknown]
  - Blood pressure decreased [Unknown]
  - Tachycardia [Unknown]
  - Heart rate increased [Unknown]
  - Pyrexia [Unknown]
  - Oxygen saturation decreased [Unknown]
